FAERS Safety Report 10049367 (Version 1)
Quarter: 2014Q2

REPORT INFORMATION
  Report Type: Spontaneous
  Country: FR (occurrence: FR)
  Receive Date: 20140401
  Receipt Date: 20140401
  Transmission Date: 20141212
  Serious: Yes (Life-Threatening)
  Sender: FDA-Public Use
  Company Number: FR-ROCHE-1371592

PATIENT
  Age: 32 Year
  Sex: Male

DRUGS (4)
  1. LEXOMIL [Suspect]
     Indication: PRODUCT USED FOR UNKNOWN INDICATION
     Route: 048
     Dates: start: 20140116, end: 20140116
  2. VALIUM [Suspect]
     Indication: PRODUCT USED FOR UNKNOWN INDICATION
     Route: 048
     Dates: start: 20140116, end: 20140116
  3. SUBUTEX [Suspect]
     Indication: PRODUCT USED FOR UNKNOWN INDICATION
     Route: 048
     Dates: start: 20140116, end: 20140116
  4. NARCAN [Concomitant]
     Dosage: HALF AMPOULE
     Route: 065

REACTIONS (2)
  - Respiratory arrest [Recovered/Resolved]
  - Intentional product misuse [Unknown]
